FAERS Safety Report 18676417 (Version 1)
Quarter: 2020Q4

REPORT INFORMATION
  Report Type: Spontaneous
  Country: US (occurrence: US)
  Receive Date: 20201229
  Receipt Date: 20201229
  Transmission Date: 20210114
  Serious: Yes (Death, Hospitalization)
  Sender: FDA-Public Use
  Company Number: None

PATIENT
  Age: 78 Year
  Sex: Male
  Weight: 76.5 kg

DRUGS (4)
  1. CEFTRIAXONE. [Concomitant]
     Active Substance: CEFTRIAXONE
     Dates: start: 20201210, end: 20201217
  2. BARICITINIB. [Suspect]
     Active Substance: BARICITINIB
     Indication: COVID-19
     Route: 048
     Dates: start: 20201211, end: 20201224
  3. REMESIVIR [Concomitant]
     Dates: start: 20201208, end: 20201212
  4. DEXAMETHASONE. [Concomitant]
     Active Substance: DEXAMETHASONE
     Dates: start: 20201208, end: 20201216

REACTIONS (9)
  - Cardiac arrest [None]
  - Acute kidney injury [None]
  - Hypotension [None]
  - Tachycardia [None]
  - Dysphagia [None]
  - Delirium [None]
  - Depressed level of consciousness [None]
  - Intentional product use issue [None]
  - Diabetes mellitus inadequate control [None]

NARRATIVE: CASE EVENT DATE: 20201224
